FAERS Safety Report 7112514-4 (Version None)
Quarter: 2010Q4

REPORT INFORMATION
  Report Type: 
  Country: None (occurrence: None)
  Receive Date: 20101119
  Receipt Date: 20101109
  Transmission Date: 20110411
  Serious: Yes (Other)
  Sender: FDA-Public Use
  Company Number: US-BAYER-201041678NA

PATIENT
  Sex: Female

DRUGS (1)
  1. MIRENA [Suspect]
     Indication: PRODUCT USED FOR UNKNOWN INDICATION
     Dosage: INSERTED ON ABOUT 6 TO 8 MONTHS PRIOR TO FIRST REPORT
     Route: 015
     Dates: start: 20100101

REACTIONS (3)
  - DEVICE DISLOCATION [None]
  - MENORRHAGIA [None]
  - UTERINE PERFORATION [None]
